FAERS Safety Report 19652431 (Version 2)
Quarter: 2021Q3

REPORT INFORMATION
  Report Type: Spontaneous
  Country: DE (occurrence: DE)
  Receive Date: 20210803
  Receipt Date: 20210818
  Transmission Date: 20211014
  Serious: Yes (Hospitalization)
  Sender: FDA-Public Use
  Company Number: DE-DSJP-DSE-2021-123567

PATIENT
  Age: 79 Year
  Sex: Male
  Weight: 97 kg

DRUGS (1)
  1. LIXIANA [Suspect]
     Active Substance: EDOXABAN TOSYLATE
     Indication: ATRIAL FIBRILLATION
     Dosage: 15 MG, QD

REACTIONS (2)
  - Hospitalisation [Unknown]
  - Underdose [Unknown]

NARRATIVE: CASE EVENT DATE: 20210727
